FAERS Safety Report 24209345 (Version 1)
Quarter: 2024Q3

REPORT INFORMATION
  Report Type: Spontaneous
  Country: SK (occurrence: SK)
  Receive Date: 20240814
  Receipt Date: 20240814
  Transmission Date: 20241017
  Serious: Yes (Other)
  Sender: ACCORD
  Company Number: None

PATIENT
  Age: 16 Year
  Sex: Female

DRUGS (5)
  1. QUETIAPINE [Suspect]
     Active Substance: QUETIAPINE
     Indication: Mixed anxiety and depressive disorder
     Dosage: 0-50 MG-0, STRENGTH: 200 MG, 50 MG
     Dates: start: 20240412, end: 20240503
  2. QUETIAPINE [Suspect]
     Active Substance: QUETIAPINE
     Indication: Mixed anxiety and depressive disorder
     Dosage: STRENGTH: 25 MG, 0-1-0
     Dates: start: 20240412
  3. ESCITALOPRAM [Concomitant]
     Active Substance: ESCITALOPRAM OXALATE
     Indication: Mixed anxiety and depressive disorder
     Dosage: 10 MG-0-0, STRENGTH: 10 MG
     Dates: start: 20240412
  4. QUETIAPINE [Suspect]
     Active Substance: QUETIAPINE
     Indication: Mixed anxiety and depressive disorder
     Dosage: 0-0-200 MG, STRENGTH: 200 MG, 50 MG
     Dates: start: 20240412, end: 20240509
  5. QUETIAPINE [Suspect]
     Active Substance: QUETIAPINE
     Indication: Mixed anxiety and depressive disorder
     Dosage: 0-0-175 MG, STRENGTH: 200 MG, 50 MG
     Dates: start: 20240509

REACTIONS (5)
  - Nausea [Recovered/Resolved]
  - Hepatic enzyme increased [Recovered/Resolved]
  - Hypersomnia [Recovered/Resolved]
  - Sudden onset of sleep [Recovered/Resolved]
  - Rash macular [Recovered/Resolved]

NARRATIVE: CASE EVENT DATE: 20240428
